FAERS Safety Report 12627269 (Version 3)
Quarter: 2016Q3

REPORT INFORMATION
  Report Type: Report from Study
  Country: CA (occurrence: CA)
  Receive Date: 20160805
  Receipt Date: 20160819
  Transmission Date: 20161109
  Serious: Yes (Death)
  Sender: FDA-Public Use
  Company Number: CA-ABBVIE-16K-028-1694065-00

PATIENT
  Sex: Female

DRUGS (1)
  1. HUMIRA [Suspect]
     Active Substance: ADALIMUMAB
     Indication: CROHN^S DISEASE
     Route: 058
     Dates: start: 20160614, end: 20160614

REACTIONS (7)
  - Yersinia infection [Unknown]
  - Large intestine perforation [Fatal]
  - Clostridium difficile infection [Fatal]
  - Colitis [Unknown]
  - Sepsis [Fatal]
  - Abdominal discomfort [Unknown]
  - Respiratory failure [Fatal]

NARRATIVE: CASE EVENT DATE: 2016
